FAERS Safety Report 16153396 (Version 1)
Quarter: 2019Q2

REPORT INFORMATION
  Report Type: Spontaneous
  Country: HN (occurrence: HN)
  Receive Date: 20190403
  Receipt Date: 20190403
  Transmission Date: 20190711
  Serious: Yes (Other)
  Sender: FDA-Public Use
  Company Number: HN-B.I. PHARMACEUTICALS,INC./RIDGEFIELD-2019-BI-014913

PATIENT
  Age: 50 Year
  Sex: Female

DRUGS (1)
  1. JARDIANZ DUO [Suspect]
     Active Substance: EMPAGLIFLOZIN\METFORMIN HYDROCHLORIDE
     Indication: PRODUCT USED FOR UNKNOWN INDICATION
     Dosage: 12.5/850
     Route: 048

REACTIONS (1)
  - Genital discomfort [Unknown]
